FAERS Safety Report 19227725 (Version 1)
Quarter: 2021Q2

REPORT INFORMATION
  Report Type: Spontaneous
  Country: JP (occurrence: JP)
  Receive Date: 20210507
  Receipt Date: 20210507
  Transmission Date: 20210717
  Serious: Yes (Death, Life-Threatening, Hospitalization, Other)
  Sender: FDA-Public Use
  Company Number: JP-LUPIN PHARMACEUTICALS INC.-2021-06145

PATIENT
  Age: 9 Decade
  Sex: Male
  Weight: 69 kg

DRUGS (1)
  1. SILDENAFIL. [Suspect]
     Active Substance: SILDENAFIL
     Indication: PRODUCT USED FOR UNKNOWN INDICATION
     Dosage: UNK
     Route: 048

REACTIONS (9)
  - Aspiration [Fatal]
  - Loss of consciousness [Fatal]
  - Asphyxia [Fatal]
  - Blood pressure decreased [Fatal]
  - Dizziness [Fatal]
  - Coronary artery stenosis [Fatal]
  - Prescription drug used without a prescription [Fatal]
  - Temperature intolerance [Fatal]
  - Vertigo [Fatal]
